FAERS Safety Report 5113240-3 (Version None)
Quarter: 2006Q3

REPORT INFORMATION
  Report Type: 
  Country: None (occurrence: None)
  Receive Date: 20060920
  Receipt Date: 20060901
  Transmission Date: 20061208
  Serious: Yes (Hospitalization)
  Sender: FDA-Public Use
  Company Number: US200605006257

PATIENT
  Sex: Female
  Weight: 68 kg

DRUGS (1)
  1. ZYPREXA [Suspect]
     Dates: start: 20010101, end: 20030101

REACTIONS (2)
  - CHOLELITHIASIS [None]
  - PANCREATITIS [None]
